FAERS Safety Report 10577157 (Version 4)
Quarter: 2015Q3

REPORT INFORMATION
  Report Type: Spontaneous
  Country: BR (occurrence: BR)
  Receive Date: 20141111
  Receipt Date: 20150915
  Transmission Date: 20151125
  Serious: Yes (Hospitalization)
  Sender: FDA-Public Use
  Company Number: BR-PFIZER INC-2014202422

PATIENT
  Age: 53 Year
  Sex: Male

DRUGS (2)
  1. SUTENT [Suspect]
     Active Substance: SUNITINIB MALATE
     Dosage: 50 MG, CYCLIC (SCHEME 4X2, CONTINUOUS)
     Route: 048
     Dates: start: 20140530, end: 20141016
  2. SUTENT [Suspect]
     Active Substance: SUNITINIB MALATE
     Indication: RENAL CELL CARCINOMA
     Dosage: 50 MG CYCLIC (4X2)
     Route: 048
     Dates: start: 2013, end: 2014

REACTIONS (14)
  - Mouth haemorrhage [Recovered/Resolved]
  - Malaise [Recovered/Resolved]
  - Mouth injury [Recovered/Resolved]
  - Pruritus [Recovered/Resolved]
  - Skin haemorrhage [Recovered/Resolved]
  - Nervousness [Recovered/Resolved]
  - Pallor [Recovered/Resolved]
  - Gastrointestinal necrosis [Recovered/Resolved]
  - Renal cell carcinoma [Recovered/Resolved]
  - Dysgeusia [Recovered/Resolved]
  - Aggression [Recovered/Resolved]
  - Disease progression [Recovered/Resolved]
  - Yellow skin [Recovered/Resolved]
  - Hyperaesthesia [Recovered/Resolved]

NARRATIVE: CASE EVENT DATE: 2013
